FAERS Safety Report 14063501 (Version 2)
Quarter: 2017Q4

REPORT INFORMATION
  Report Type: Spontaneous
  Country: FR (occurrence: FR)
  Receive Date: 20171009
  Receipt Date: 20171205
  Transmission Date: 20180321
  Serious: Yes (Disabling)
  Sender: FDA-Public Use
  Company Number: FR-CELGENEUS-FRA-20170908549

PATIENT
  Age: 19 Year
  Sex: Male

DRUGS (16)
  1. SUCRALFATE. [Concomitant]
     Active Substance: SUCRALFATE
     Indication: PRODUCT USED FOR UNKNOWN INDICATION
     Route: 065
  2. THALIDOMIDE [Suspect]
     Active Substance: THALIDOMIDE
     Dosage: 25 MILLIGRAM
     Route: 048
     Dates: start: 20041123
  3. COLCHIMAX [Concomitant]
     Active Substance: COLCHICINE\DICYCLOMINE HYDROCHLORIDE
     Indication: APHTHOUS ULCER
     Route: 065
     Dates: start: 200408
  4. ULTRAPROCT [Concomitant]
     Indication: PRODUCT USED FOR UNKNOWN INDICATION
     Dosage: 1 DOSAGE FORMS
     Route: 065
  5. ULTRAPROCT [Concomitant]
     Route: 061
  6. DICETEL [Concomitant]
     Active Substance: PINAVERIUM BROMIDE
     Indication: PRODUCT USED FOR UNKNOWN INDICATION
     Route: 065
  7. CICALFATE [Concomitant]
     Indication: ANTIINFLAMMATORY THERAPY
     Route: 061
  8. CIRKAN [Concomitant]
     Active Substance: DESONIDE\LIDOCAINE
     Indication: PRODUCT USED FOR UNKNOWN INDICATION
     Route: 065
     Dates: start: 20140521
  9. THALIDOMIDE [Suspect]
     Active Substance: THALIDOMIDE
     Indication: APHTHOUS ULCER
     Dosage: 50 MILLIGRAM
     Route: 048
     Dates: start: 200409, end: 2007
  10. THALIDOMIDE [Suspect]
     Active Substance: THALIDOMIDE
     Dosage: 7.1429 MILLIGRAM
     Route: 048
     Dates: start: 20060724
  11. DAFLON [Concomitant]
     Active Substance: DIOSMIN\HESPERIDIN
     Indication: PRODUCT USED FOR UNKNOWN INDICATION
     Route: 065
     Dates: start: 20140521
  12. MELAXOSE [Concomitant]
     Active Substance: LACTULOSE\PARAFFIN
     Indication: PRODUCT USED FOR UNKNOWN INDICATION
     Dosage: 3 TABLESPOON
     Route: 065
  13. BEPANTHENE [Concomitant]
     Active Substance: DEXPANTHENOL
     Indication: ANTIINFLAMMATORY THERAPY
     Route: 061
  14. THALIDOMIDE [Suspect]
     Active Substance: THALIDOMIDE
     Dosage: 14.2857 MILLIGRAM
     Route: 048
     Dates: start: 20051229
  15. BECILAN [Concomitant]
     Active Substance: PYRIDOXINE
     Indication: PRODUCT USED FOR UNKNOWN INDICATION
     Route: 065
     Dates: start: 200408
  16. TITANOREINE [Concomitant]
     Active Substance: CARRAGEENAN\TITANIUM\ZINC
     Indication: PRODUCT USED FOR UNKNOWN INDICATION
     Route: 065
     Dates: start: 20140521

REACTIONS (2)
  - Action tremor [Unknown]
  - Pudendal canal syndrome [Not Recovered/Not Resolved]

NARRATIVE: CASE EVENT DATE: 20060316
